FAERS Safety Report 7298167-3 (Version None)
Quarter: 2011Q1

REPORT INFORMATION
  Report Type: 
  Country: None (occurrence: None)
  Receive Date: 20110207
  Receipt Date: 20110125
  Transmission Date: 20110831
  Serious: Yes (Other)
  Sender: FDA-Public Use
  Company Number: 2011AP000012

PATIENT
  Age: 28 Year
  Sex: Male

DRUGS (5)
  1. ANTIPSYCHOTICS (ANTIPSYCHOTICS) [Concomitant]
  2. AMISULPRIDE (AMISULPRIDE) [Concomitant]
  3. CLOZAPINE [Concomitant]
  4. MYCOPHENOLATE MOFETIL [Suspect]
     Indication: PRODUCT USED FOR UNKNOWN INDICATION
  5. TACROLIMUS [Concomitant]

REACTIONS (4)
  - EXTRAPYRAMIDAL DISORDER [None]
  - NO THERAPEUTIC RESPONSE [None]
  - ABNORMAL BEHAVIOUR [None]
  - HALLUCINATION, AUDITORY [None]
